FAERS Safety Report 9956813 (Version 1)
Quarter: 2014Q1

REPORT INFORMATION
  Report Type: Report from Study
  Country: US (occurrence: US)
  Receive Date: 20140304
  Receipt Date: 20140304
  Transmission Date: 20141002
  Serious: No
  Sender: FDA-Public Use
  Company Number: US-ABBVIE-13P-163-1097148-00

PATIENT
  Age: 36 Year
  Sex: Female

DRUGS (2)
  1. HUMIRA [Suspect]
     Indication: CROHN^S DISEASE
     Dates: start: 20130422
  2. AZATHIOPRINE [Concomitant]
     Indication: IMMUNE SYSTEM DISORDER
     Dosage: LOW DOSE
     Dates: start: 20130522

REACTIONS (2)
  - Hernia [Unknown]
  - Injection site bruising [Recovering/Resolving]
